FAERS Safety Report 15260479 (Version 1)
Quarter: 2018Q3

REPORT INFORMATION
  Report Type: Spontaneous
  Country: US (occurrence: US)
  Receive Date: 20180809
  Receipt Date: 20180809
  Transmission Date: 20181010
  Serious: Yes (Other)
  Sender: FDA-Public Use
  Company Number: US-MYLANLABS-2018M1058420

PATIENT
  Age: 71 Year
  Sex: Male
  Weight: 93 kg

DRUGS (2)
  1. AMLODIPINE BESYLATE TABLETS, USP [Suspect]
     Active Substance: AMLODIPINE BESYLATE
     Indication: BLOOD PRESSURE MEASUREMENT
     Dosage: 10 MG, UNK
     Route: 048
     Dates: start: 20180724
  2. NORVASC [Concomitant]
     Active Substance: AMLODIPINE BESYLATE
     Indication: BLOOD PRESSURE MEASUREMENT

REACTIONS (10)
  - Speech disorder [Recovered/Resolved]
  - Choking [Recovered/Resolved]
  - Dysphonia [Recovering/Resolving]
  - Product coating issue [Unknown]
  - Panic reaction [Recovered/Resolved]
  - Dysphagia [Recovered/Resolved]
  - Insomnia [Recovered/Resolved]
  - Throat irritation [Recovered/Resolved]
  - Oropharyngeal pain [Recovering/Resolving]
  - Cough [Unknown]

NARRATIVE: CASE EVENT DATE: 20180724
